FAERS Safety Report 20810381 (Version 1)
Quarter: 2022Q2

REPORT INFORMATION
  Report Type: Spontaneous
  Country: US (occurrence: US)
  Receive Date: 20220510
  Receipt Date: 20220510
  Transmission Date: 20220721
  Serious: No
  Sender: FDA-Public Use
  Company Number: US-OYSTER POINT PHARMA, INC.-2022OYS00293

PATIENT
  Age: 53 Year
  Sex: Female
  Weight: 52.154 kg

DRUGS (5)
  1. TYRVAYA [Suspect]
     Active Substance: VARENICLINE TARTRATE
     Indication: Dry eye
     Dosage: 1 SPRAY IN EACH NOTRIL, 2X/DAY
     Route: 045
     Dates: start: 202203, end: 20220318
  2. OXYCODONE [Concomitant]
     Active Substance: OXYCODONE
  3. DIAZEPAM [Concomitant]
     Active Substance: DIAZEPAM
  4. ERYTHROMYCIN DROPS [Concomitant]
  5. RESTASIS [Concomitant]
     Active Substance: CYCLOSPORINE
     Dosage: UNK

REACTIONS (23)
  - Eye irritation [Recovering/Resolving]
  - Swelling [Recovering/Resolving]
  - Nausea [Recovering/Resolving]
  - Vision blurred [Recovering/Resolving]
  - Headache [Recovering/Resolving]
  - Pyrexia [Recovered/Resolved]
  - Malaise [Recovering/Resolving]
  - Oropharyngeal pain [Recovering/Resolving]
  - Pain [Recovering/Resolving]
  - Abdominal distension [Recovering/Resolving]
  - Constipation [Recovering/Resolving]
  - Ocular discomfort [Recovering/Resolving]
  - Photophobia [Recovering/Resolving]
  - Fall [Recovered/Resolved]
  - Dizziness postural [Recovering/Resolving]
  - Dizziness [Recovering/Resolving]
  - Decreased appetite [Recovering/Resolving]
  - Ageusia [Recovering/Resolving]
  - Vomiting [Recovering/Resolving]
  - Abdominal discomfort [Unknown]
  - Ocular hyperaemia [Unknown]
  - Nasal discomfort [Recovering/Resolving]
  - Throat irritation [Unknown]

NARRATIVE: CASE EVENT DATE: 20020301
